FAERS Safety Report 22390222 (Version 1)
Quarter: 2023Q2

REPORT INFORMATION
  Report Type: Spontaneous
  Country: FR (occurrence: FR)
  Receive Date: 20230531
  Receipt Date: 20230531
  Transmission Date: 20230721
  Serious: Yes (Hospitalization)
  Sender: FDA-Public Use
  Company Number: None

PATIENT
  Age: 50 Year
  Sex: Male

DRUGS (3)
  1. CYTARABINE [Suspect]
     Active Substance: CYTARABINE
     Indication: Mantle cell lymphoma
     Dosage: 4000 MG, CYCLIC
     Route: 042
     Dates: start: 20230509, end: 20230509
  2. OXALIPLATIN [Suspect]
     Active Substance: OXALIPLATIN
     Indication: Mantle cell lymphoma
     Dosage: 260 MG, CYCLIC
     Route: 042
     Dates: start: 20230509, end: 20230509
  3. RITUXIMAB [Suspect]
     Active Substance: RITUXIMAB
     Indication: Mantle cell lymphoma
     Dosage: 750 MG, CYCLIC
     Route: 042
     Dates: start: 20230509, end: 20230509

REACTIONS (2)
  - Pyrexia [Recovered/Resolved]
  - Conjunctival hyperaemia [Unknown]

NARRATIVE: CASE EVENT DATE: 20230510
